FAERS Safety Report 5221792-8 (Version None)
Quarter: 2007Q1

REPORT INFORMATION
  Report Type: 
  Country: None (occurrence: None)
  Receive Date: 20070129
  Receipt Date: 20070118
  Transmission Date: 20070707
  Serious: Yes (Hospitalization)
  Sender: FDA-Public Use
  Company Number: US-JNJFOC-20070104708

PATIENT
  Sex: Male
  Weight: 65.77 kg

DRUGS (9)
  1. INFLIXIMAB [Suspect]
     Indication: RHEUMATOID ARTHRITIS
  2. CALCIUM+D [Concomitant]
  3. METHOTREXATE [Concomitant]
  4. FOLIC ACID [Concomitant]
  5. ASPIRIN [Concomitant]
  6. TIAZAC [Concomitant]
  7. SYNTHROID [Concomitant]
  8. TIKOSYN [Concomitant]
  9. RYTHMOL [Concomitant]
     Dosage: DAILY

REACTIONS (1)
  - ATRIAL FIBRILLATION [None]
